FAERS Safety Report 19117228 (Version 1)
Quarter: 2021Q2

REPORT INFORMATION
  Report Type: Spontaneous
  Country: GB (occurrence: GB)
  Receive Date: 20210409
  Receipt Date: 20210409
  Transmission Date: 20210717
  Serious: Yes (Other)
  Sender: FDA-Public Use
  Company Number: GB-TEVA-2021-GB-1897888

PATIENT
  Age: 22 Year
  Sex: Female
  Weight: 111 kg

DRUGS (4)
  1. CLENIL MODULITE [Concomitant]
     Active Substance: BECLOMETHASONE DIPROPIONATE
     Dosage: 4 DOSAGE FORMS DAILY;
     Route: 055
     Dates: start: 20200622
  2. CODEINE PHOSPHATE [Concomitant]
     Active Substance: CODEINE PHOSPHATE
     Dosage: ONE OR TWO TO BE TAKEN UPTO FOUR TIMES DAILY
     Dates: start: 20210127, end: 20210203
  3. ACETAZOLAMIDE. [Suspect]
     Active Substance: ACETAZOLAMIDE
     Dosage: TAKE 1 IN MORNING AND 2 AT NIGHT FOR 2 WEEKS TH...
     Route: 048
     Dates: start: 20201127, end: 20210316
  4. SERTRALINE [Concomitant]
     Active Substance: SERTRALINE HYDROCHLORIDE
     Dosage: 1 DOSAGE FORMS DAILY;
     Dates: start: 20201030

REACTIONS (2)
  - Mouth swelling [Unknown]
  - Mouth ulceration [Unknown]
